FAERS Safety Report 13179646 (Version 1)
Quarter: 2017Q1

REPORT INFORMATION
  Report Type: Spontaneous
  Country: GB (occurrence: GB)
  Receive Date: 20170202
  Receipt Date: 20170202
  Transmission Date: 20170428
  Serious: Yes (Other)
  Sender: FDA-Public Use
  Company Number: GB-BAYER-2017-015014

PATIENT
  Age: 41 Year
  Sex: Female
  Weight: 66 kg

DRUGS (14)
  1. PREGABALIN. [Concomitant]
     Active Substance: PREGABALIN
     Dosage: 1 DF, BID
     Dates: start: 20161230
  2. LANSOPRAZOLE. [Concomitant]
     Active Substance: LANSOPRAZOLE
     Dosage: 1 DF, QD
     Dates: start: 20160201
  3. BENZYDAMINE HYDROCHLORIDE [Concomitant]
     Active Substance: BENZYDAMINE HYDROCHLORIDE
     Dosage: 15 ML, Q3HR
     Dates: start: 20170116
  4. CITALOPRAM [Concomitant]
     Active Substance: CITALOPRAM HYDROBROMIDE
     Dosage: 1 DF, QD
     Dates: start: 20150922
  5. CO-CODAMOL EFF. [Concomitant]
     Dosage: UNK
     Dates: start: 20170112
  6. DIAZEPAM. [Concomitant]
     Active Substance: DIAZEPAM
     Dosage: 1 DF, ONCE
     Dates: start: 20170111
  7. LEVOTHYROXINE. [Concomitant]
     Active Substance: LEVOTHYROXINE
     Dosage: 1 DF, QD
     Dates: start: 20150922
  8. TRAMADOL. [Concomitant]
     Active Substance: TRAMADOL
     Dosage: UNK UNK, PRN
     Dates: start: 20161121, end: 20161122
  9. GABAPENTIN. [Concomitant]
     Active Substance: GABAPENTIN
     Dosage: UNK
     Dates: start: 20161031, end: 20161130
  10. LIDOCAINE. [Concomitant]
     Active Substance: LIDOCAINE
     Dosage: UNK
     Dates: start: 20170116
  11. NAPROXEN SODIUM ({= 220 MG) [Suspect]
     Active Substance: NAPROXEN SODIUM
     Indication: BACK PAIN
     Dosage: UNK
     Dates: start: 20170116
  12. CEFALEXIN [Concomitant]
     Active Substance: CEPHALEXIN
     Dosage: 1 DF, QID
     Dates: start: 20161019, end: 20161026
  13. CHLORPHENAMINE [Concomitant]
     Active Substance: CHLORPHENIRAMINE MALEATE
     Dosage: 1 DF, UNK
     Dates: start: 20170116
  14. NEDOCROMIL SODIUM. [Concomitant]
     Active Substance: NEDOCROMIL SODIUM
     Dosage: 4 GTT, TID
     Route: 046
     Dates: start: 20161222

REACTIONS (2)
  - Genital ulceration [Not Recovered/Not Resolved]
  - Mouth ulceration [Not Recovered/Not Resolved]

NARRATIVE: CASE EVENT DATE: 20170116
